FAERS Safety Report 9190949 (Version 1)
Quarter: 2013Q1

REPORT INFORMATION
  Report Type: Spontaneous
  Country: US (occurrence: None)
  Receive Date: 20120703
  Receipt Date: 20120703
  Transmission Date: 20140127
  Serious: Yes (Other)
  Sender: FDA-Public Use
  Company Number: PHEH2012US007817

PATIENT
  Age: 47 Year
  Sex: Female

DRUGS (1)
  1. GILENYA (FTY)CAPSULE [Suspect]

REACTIONS (3)
  - Depression [None]
  - Visual impairment [None]
  - Movement disorder [None]
